FAERS Safety Report 14767913 (Version 3)
Quarter: 2019Q1

REPORT INFORMATION
  Report Type: Spontaneous
  Country: US (occurrence: US)
  Receive Date: 20180417
  Receipt Date: 20190110
  Transmission Date: 20190417
  Serious: Yes (Other)
  Sender: FDA-Public Use
  Company Number: US-ASTRAZENECA-2018SE45682

PATIENT
  Age: 25456 Day
  Sex: Female
  Weight: 59.9 kg

DRUGS (82)
  1. LYSINE [Concomitant]
     Active Substance: LYSINE
     Route: 065
  2. TOBRAMYCIN. [Concomitant]
     Active Substance: TOBRAMYCIN
     Route: 047
  3. ALPRAZOLAM. [Concomitant]
     Active Substance: ALPRAZOLAM
     Route: 065
     Dates: start: 20091014
  4. PLAVIX [Concomitant]
     Active Substance: CLOPIDOGREL BISULFATE
     Indication: CEREBROVASCULAR ACCIDENT
     Route: 065
     Dates: start: 2010, end: 2012
  5. GABAPENTIN. [Concomitant]
     Active Substance: GABAPENTIN
     Indication: DEPRESSION
     Route: 065
     Dates: start: 2010, end: 2013
  6. SERTRALINE [Concomitant]
     Active Substance: SERTRALINE HYDROCHLORIDE
     Indication: DEPRESSION
     Route: 065
     Dates: start: 2010, end: 2012
  7. TOVIAZ [Concomitant]
     Active Substance: FESOTERODINE FUMARATE
     Indication: HYPERTONIC BLADDER
     Route: 065
     Dates: start: 2013
  8. QUETIAPINE FUMARATE. [Concomitant]
     Active Substance: QUETIAPINE FUMARATE
     Indication: DEPRESSION
     Route: 065
     Dates: start: 2012, end: 2013
  9. AZITHROMYCIN ANHYDROUS. [Concomitant]
     Active Substance: AZITHROMYCIN ANHYDROUS
     Indication: INFECTION
     Route: 065
     Dates: start: 2010, end: 2013
  10. RU HIST FORTE [Concomitant]
     Route: 065
  11. PANTOPRAZOLE [Concomitant]
     Active Substance: PANTOPRAZOLE
     Route: 065
     Dates: start: 20161005
  12. NEXIUM [Suspect]
     Active Substance: ESOMEPRAZOLE MAGNESIUM
     Indication: GASTROOESOPHAGEAL REFLUX DISEASE
     Route: 048
     Dates: start: 20110824
  13. PROMETHAZINE [Concomitant]
     Active Substance: PROMETHAZINE\PROMETHAZINE HYDROCHLORIDE
     Indication: MOTION SICKNESS
     Route: 065
     Dates: start: 2011
  14. TRAMADOL. [Concomitant]
     Active Substance: TRAMADOL
     Indication: PAIN
     Route: 065
     Dates: start: 2012, end: 2013
  15. TRAMADOL. [Concomitant]
     Active Substance: TRAMADOL
     Indication: PAIN
     Route: 065
     Dates: start: 20140415
  16. GABAPENTIN. [Concomitant]
     Active Substance: GABAPENTIN
     Indication: NEURALGIA
     Route: 065
     Dates: start: 2013
  17. FLUCONAZOLE. [Concomitant]
     Active Substance: FLUCONAZOLE
     Indication: INFECTION
     Route: 065
     Dates: start: 2012
  18. FLEXERIL [Concomitant]
     Active Substance: CYCLOBENZAPRINE HYDROCHLORIDE
     Route: 065
  19. HYDROCODONE [Concomitant]
     Active Substance: HYDROCODONE
     Route: 065
  20. BUTRANS [Concomitant]
     Active Substance: BUPRENORPHINE
     Route: 048
  21. PROTONIX [Concomitant]
     Active Substance: PANTOPRAZOLE SODIUM
     Route: 065
  22. LEVOFLOXACIN. [Concomitant]
     Active Substance: LEVOFLOXACIN
     Route: 065
     Dates: start: 20140228
  23. RANITIDINE. [Concomitant]
     Active Substance: RANITIDINE
     Route: 065
     Dates: start: 20140610
  24. NEXIUM [Suspect]
     Active Substance: ESOMEPRAZOLE MAGNESIUM
     Indication: GASTROOESOPHAGEAL REFLUX DISEASE
     Route: 048
     Dates: start: 20141107
  25. VITAMIN D [Concomitant]
     Active Substance: CHOLECALCIFEROL
     Route: 065
     Dates: start: 2008
  26. VITAMINS NOS [Concomitant]
     Active Substance: VITAMINS
     Indication: GENERAL PHYSICAL HEALTH DETERIORATION
     Route: 065
     Dates: start: 2008
  27. VITAMINS NOS [Concomitant]
     Active Substance: VITAMINS
     Route: 065
     Dates: start: 2017
  28. PILOCARPINE. [Concomitant]
     Active Substance: PILOCARPINE
     Indication: SJOGREN^S SYNDROME
     Route: 065
     Dates: start: 2010, end: 2013
  29. ENABLEX [Concomitant]
     Active Substance: DARIFENACIN HYDROBROMIDE
     Indication: HYPERTONIC BLADDER
     Route: 065
     Dates: start: 2010, end: 2012
  30. TEMAZEPAM. [Concomitant]
     Active Substance: TEMAZEPAM
     Indication: INSOMNIA
     Route: 065
     Dates: start: 2010, end: 2013
  31. UROGESIC BLUE [Concomitant]
     Active Substance: HYOSCYAMINE SULFATE\METHENAMINE\METHYLENE BLUE\SODIUM PHOSPHATE, MONOBASIC
     Indication: URINARY TRACT INFECTION
     Route: 065
     Dates: start: 2017
  32. RESTASIS [Concomitant]
     Active Substance: CYCLOSPORINE
     Dosage: 0.05% 0.4 ML/ 60
  33. NITROFURANTOIN. [Concomitant]
     Active Substance: NITROFURANTOIN
     Route: 065
     Dates: start: 20140405
  34. ZOFRAN ODT [Concomitant]
     Active Substance: ONDANSETRON HYDROCHLORIDE
     Route: 065
  35. AMBIEN [Concomitant]
     Active Substance: ZOLPIDEM TARTRATE
     Route: 065
  36. HYDROCODONE BITARTRATE AND ACETAMINOPHEN [Concomitant]
     Active Substance: ACETAMINOPHEN\HYDROCODONE BITARTRATE
     Route: 065
  37. MEPERIDINE [Concomitant]
     Active Substance: MEPERIDINE
     Route: 065
  38. NEXIUM [Suspect]
     Active Substance: ESOMEPRAZOLE MAGNESIUM
     Indication: GASTROOESOPHAGEAL REFLUX DISEASE
     Route: 048
     Dates: start: 2001, end: 201807
  39. OMEPRAZOLE. [Suspect]
     Active Substance: OMEPRAZOLE
     Indication: GASTROOESOPHAGEAL REFLUX DISEASE
     Dosage: GENERIC
     Route: 065
     Dates: start: 20100607, end: 20110225
  40. ELMIRON [Concomitant]
     Active Substance: PENTOSAN POLYSULFATE SODIUM
     Indication: ANTICOAGULANT THERAPY
     Route: 065
     Dates: start: 2010
  41. LIPITOR [Concomitant]
     Active Substance: ATORVASTATIN CALCIUM
     Indication: BLOOD CHOLESTEROL INCREASED
     Route: 065
     Dates: start: 2010, end: 2011
  42. ROPINIROLE. [Concomitant]
     Active Substance: ROPINIROLE
     Indication: RESTLESS LEGS SYNDROME
     Route: 065
     Dates: start: 2010
  43. BACID [Concomitant]
     Active Substance: LACTOBACILLUS ACIDOPHILUS
     Route: 065
  44. ACETA/COD [Concomitant]
     Route: 065
  45. CLONAZEPAM. [Concomitant]
     Active Substance: CLONAZEPAM
     Route: 065
     Dates: start: 20091012
  46. OXYCODONE [Concomitant]
     Active Substance: OXYCODONE
     Route: 065
     Dates: start: 20091012
  47. VITAMIN B12 [Concomitant]
     Active Substance: CYANOCOBALAMIN
     Route: 065
  48. SALAGEN [Concomitant]
     Active Substance: PILOCARPINE HYDROCHLORIDE
     Route: 065
  49. OMEPRAZOLE. [Suspect]
     Active Substance: OMEPRAZOLE
     Indication: GASTROOESOPHAGEAL REFLUX DISEASE
     Dosage: GENERIC
     Route: 065
     Dates: start: 2016, end: 2017
  50. VITAMIN B NOS [Concomitant]
     Active Substance: VITAMIN B
     Indication: GENERAL PHYSICAL HEALTH DETERIORATION
     Route: 065
     Dates: start: 2008
  51. GABAPENTIN. [Concomitant]
     Active Substance: GABAPENTIN
     Indication: NEURALGIA
     Route: 065
  52. TIZANIDINE. [Concomitant]
     Active Substance: TIZANIDINE
     Indication: MUSCLE SPASMS
     Route: 065
     Dates: start: 2012, end: 2014
  53. METHYLPREDNISOLONE. [Concomitant]
     Active Substance: METHYLPREDNISOLONE
     Indication: INFLAMMATION
     Route: 065
     Dates: start: 2013
  54. CEFUROXIME. [Concomitant]
     Active Substance: CEFUROXIME
     Route: 065
  55. TRAMACET [Concomitant]
     Active Substance: ACETAMINOPHEN\TRAMADOL
     Route: 065
  56. INDOCIN [Concomitant]
     Active Substance: INDOMETHACIN
     Route: 065
  57. MELOXICAM. [Concomitant]
     Active Substance: MELOXICAM
     Route: 065
     Dates: start: 20140414
  58. DOXEPIN [Concomitant]
     Active Substance: DOXEPIN
     Route: 065
     Dates: start: 20180920
  59. NEXIUM [Suspect]
     Active Substance: ESOMEPRAZOLE MAGNESIUM
     Indication: GASTROOESOPHAGEAL REFLUX DISEASE
     Route: 048
     Dates: start: 201102
  60. VAGIFEM [Concomitant]
     Active Substance: ESTRADIOL
     Indication: OESTROGEN THERAPY
     Dosage: 10 MCG
     Route: 065
     Dates: start: 2013, end: 2014
  61. CYMBALTA [Concomitant]
     Active Substance: DULOXETINE HYDROCHLORIDE
     Indication: DEPRESSION
     Route: 065
  62. VANCOCIN [Concomitant]
     Active Substance: VANCOMYCIN HYDROCHLORIDE
     Indication: INFECTION
     Route: 065
     Dates: start: 2012
  63. DICYCLOMINE [Concomitant]
     Active Substance: DICYCLOMINE HYDROCHLORIDE
     Indication: IRRITABLE BOWEL SYNDROME
     Route: 065
     Dates: start: 2011, end: 2013
  64. ZETIA [Concomitant]
     Active Substance: EZETIMIBE
     Indication: BLOOD CHOLESTEROL INCREASED
     Route: 065
     Dates: start: 2013
  65. ZOLPIDEM [Concomitant]
     Active Substance: ZOLPIDEM\ZOLPIDEM TARTRATE
     Indication: ANXIETY
     Route: 065
     Dates: start: 2013
  66. AMITIZA [Concomitant]
     Active Substance: LUBIPROSTONE
     Dosage: 24 MCG
     Route: 065
     Dates: start: 20140521
  67. GENTAMICIN. [Concomitant]
     Active Substance: GENTAMICIN
     Dosage: 0.1%
     Dates: start: 20150512
  68. CYMBALTA [Concomitant]
     Active Substance: DULOXETINE HYDROCHLORIDE
     Indication: DEPRESSION
     Route: 065
     Dates: start: 2012, end: 2014
  69. GABAPENTIN. [Concomitant]
     Active Substance: GABAPENTIN
     Indication: DEPRESSION
     Route: 065
     Dates: start: 2013
  70. GABAPENTIN. [Concomitant]
     Active Substance: GABAPENTIN
     Indication: NEURALGIA
     Route: 065
     Dates: start: 2010, end: 2013
  71. CIPROFLOXACIN. [Concomitant]
     Active Substance: CIPROFLOXACIN
     Indication: INFECTION
     Route: 065
     Dates: start: 2010, end: 2012
  72. ALENDRONATE SODIUM. [Concomitant]
     Active Substance: ALENDRONATE SODIUM
     Route: 065
     Dates: start: 20091014
  73. OMEGA-3 FATTY ACIDS [Concomitant]
     Active Substance: OMEGA-3 FATTY ACIDS
     Route: 065
  74. ACETAMINOPHENE [Concomitant]
     Route: 065
  75. AMITRIPTYLINE [Concomitant]
     Active Substance: AMITRIPTYLINE
     Indication: DEPRESSION
     Route: 065
     Dates: start: 2010, end: 2012
  76. GABAPENTIN. [Concomitant]
     Active Substance: GABAPENTIN
     Indication: DEPRESSION
     Route: 065
  77. NABUMETONE. [Concomitant]
     Active Substance: NABUMETONE
     Indication: PAIN
     Route: 065
     Dates: start: 2010
  78. LYRICA [Concomitant]
     Active Substance: PREGABALIN
     Indication: NEURALGIA
     Route: 065
     Dates: start: 2010, end: 2011
  79. TRAZODONE [Concomitant]
     Active Substance: TRAZODONE HYDROCHLORIDE
     Route: 065
  80. KENALOG [Concomitant]
     Active Substance: TRIAMCINOLONE ACETONIDE
     Route: 065
  81. NYSTATIN. [Concomitant]
     Active Substance: NYSTATIN
     Route: 048
  82. LOTRISONE [Concomitant]
     Active Substance: BETAMETHASONE DIPROPIONATE\CLOTRIMAZOLE
     Route: 048

REACTIONS (3)
  - Renal impairment [Unknown]
  - Acute kidney injury [Not Recovered/Not Resolved]
  - Renal failure [Unknown]

NARRATIVE: CASE EVENT DATE: 20120507
